FAERS Safety Report 15100851 (Version 8)
Quarter: 2019Q4

REPORT INFORMATION
  Report Type: Report from Study
  Country: PL (occurrence: PL)
  Receive Date: 20180703
  Receipt Date: 20191218
  Transmission Date: 20200122
  Serious: Yes (Death, Hospitalization)
  Sender: FDA-Public Use
  Company Number: PL-EISAI MEDICAL RESEARCH-EC-2018-042124

PATIENT
  Age: 67 Year
  Sex: Male
  Weight: 90 kg

DRUGS (10)
  1. PROSTAMIC [Concomitant]
  2. CLEXANE [Concomitant]
     Active Substance: ENOXAPARIN SODIUM
  3. CALCIUM POLFA [Concomitant]
  4. TRITACE [Concomitant]
     Active Substance: RAMIPRIL
  5. EVEROLIMUS. [Suspect]
     Active Substance: EVEROLIMUS
     Indication: RENAL CELL CARCINOMA
     Route: 048
     Dates: start: 20180518, end: 20180624
  6. LENVATINIB [Suspect]
     Active Substance: LENVATINIB
     Indication: RENAL CELL CARCINOMA
     Dates: start: 20180518, end: 20180624
  7. ATORIS [Concomitant]
     Active Substance: ATORVASTATIN CALCIUM
  8. EUTHYROX [Concomitant]
     Active Substance: LEVOTHYROXINE SODIUM
  9. HEPAREGEN [Concomitant]
  10. BISOCARD [Concomitant]
     Active Substance: BISOPROLOL

REACTIONS (2)
  - Diarrhoea [Not Recovered/Not Resolved]
  - Cardiovascular disorder [Fatal]

NARRATIVE: CASE EVENT DATE: 20180625
